FAERS Safety Report 10191206 (Version 2)
Quarter: 2014Q2

REPORT INFORMATION
  Report Type: Spontaneous
  Country: US (occurrence: US)
  Receive Date: 20140523
  Receipt Date: 20140606
  Transmission Date: 20141212
  Serious: No
  Sender: FDA-Public Use
  Company Number: US-BAYER-2014-070204

PATIENT
  Sex: Male

DRUGS (1)
  1. STIVARGA [Suspect]
     Indication: COLON CANCER METASTATIC
     Dosage: UNK
     Dates: start: 201405

REACTIONS (2)
  - Genital rash [Not Recovered/Not Resolved]
  - Pain of skin [Not Recovered/Not Resolved]
